FAERS Safety Report 13775128 (Version 1)
Quarter: 2017Q3

REPORT INFORMATION
  Report Type: Spontaneous
  Country: GB (occurrence: GB)
  Receive Date: 20170720
  Receipt Date: 20170720
  Transmission Date: 20171127
  Serious: Yes (Other)
  Sender: FDA-Public Use
  Company Number: GB-TEVA-786615ACC

PATIENT
  Age: 38 Year
  Sex: Male
  Weight: 57 kg

DRUGS (3)
  1. CODEINE PHOSPHATE [Concomitant]
     Active Substance: CODEINE PHOSPHATE
     Dosage: 4 DOSAGE FORMS DAILY;
     Dates: start: 20170621
  2. IBUPROFEN. [Suspect]
     Active Substance: IBUPROFEN
     Route: 048
     Dates: start: 20170617, end: 20170621
  3. TWINRIX [Concomitant]
     Active Substance: HEPATITIS A VIRUS STRAIN HM175 ANTIGEN (FORMALDEHYDE INACTIVATED)\HEPATITIS B VIRUS SUBTYPE ADW2 HBSAG SURFACE PROTEIN ANTIGEN
     Dates: start: 20170419, end: 20170419

REACTIONS (1)
  - Chest discomfort [Recovered/Resolved]

NARRATIVE: CASE EVENT DATE: 20170617
